FAERS Safety Report 12260373 (Version 1)
Quarter: 2016Q2

REPORT INFORMATION
  Report Type: Spontaneous
  Country: US (occurrence: US)
  Receive Date: 20160412
  Receipt Date: 20160412
  Transmission Date: 20160815
  Serious: No
  Sender: FDA-Public Use
  Company Number: US-SA-2016SA007648

PATIENT
  Age: 42 Year
  Sex: Female

DRUGS (1)
  1. ALLEGRA ALLERGY [Suspect]
     Active Substance: FEXOFENADINE HYDROCHLORIDE
     Indication: HYPERSENSITIVITY
     Dosage: TWICE (ONCE YESTERDAY AND ONCE TODAY)
     Route: 048
     Dates: start: 20160110

REACTIONS (3)
  - Hyperhidrosis [Recovering/Resolving]
  - Feeling jittery [Recovering/Resolving]
  - Malaise [Recovering/Resolving]
